FAERS Safety Report 25722765 (Version 2)
Quarter: 2025Q3

REPORT INFORMATION
  Report Type: Report from Study
  Country: CN (occurrence: CN)
  Receive Date: 20250825
  Receipt Date: 20250911
  Transmission Date: 20251021
  Serious: Yes (Life-Threatening, Other)
  Sender: ALEXION PHARMACEUTICALS
  Company Number: CN-AstraZeneca-CH-00935778A

PATIENT
  Age: 81 Year

DRUGS (1)
  1. TAGRISSO [Suspect]
     Active Substance: OSIMERTINIB
     Indication: Non-small cell lung cancer
     Dosage: 80 MILLIGRAM, QD

REACTIONS (1)
  - Cardiac failure acute [Recovering/Resolving]
